FAERS Safety Report 8949808 (Version 1)
Quarter: 2012Q4

REPORT INFORMATION
  Report Type: 
  Country: CA (occurrence: CA)
  Receive Date: 20121206
  Receipt Date: 20121206
  Transmission Date: 20130627
  Serious: Yes (Other)
  Sender: FDA-Public Use
  Company Number: CA-ASTRAZENECA-2012SE89728

PATIENT
  Age: 61 Year
  Sex: Male
  Weight: 120.2 kg

DRUGS (7)
  1. CRESTOR [Suspect]
     Route: 048
  2. OMEPRAZOLE [Concomitant]
     Route: 065
  3. DOMPERIDONE [Concomitant]
     Route: 065
  4. ELAVIL [Concomitant]
     Route: 065
  5. HCTZ [Concomitant]
     Route: 065
  6. MICARDIS [Concomitant]
     Route: 065
  7. VERAPAMIL SR [Concomitant]
     Route: 065

REACTIONS (2)
  - Hepatic cirrhosis [Unknown]
  - Hepatic enzyme increased [Unknown]
